FAERS Safety Report 23264350 (Version 1)
Quarter: 2023Q4

REPORT INFORMATION
  Report Type: Report from Study
  Country: US (occurrence: US)
  Receive Date: 20231205
  Receipt Date: 20231205
  Transmission Date: 20240109
  Serious: Yes (Hospitalization, Other)
  Sender: FDA-Public Use
  Company Number: US-SEATTLE GENETICS-2023SGN12732

PATIENT
  Sex: Female

DRUGS (1)
  1. TUCATINIB [Suspect]
     Active Substance: TUCATINIB
     Indication: Breast cancer female
     Dosage: UNK
     Route: 065

REACTIONS (8)
  - Renal impairment [Unknown]
  - Cardiac disorder [Unknown]
  - Hypervolaemia [Unknown]
  - Hypovolaemia [Unknown]
  - Chest discomfort [Unknown]
  - Chest pain [Unknown]
  - Product dose omission issue [Unknown]
  - Dyspnoea [Unknown]
